FAERS Safety Report 4364799-5 (Version None)
Quarter: 2004Q2

REPORT INFORMATION
  Report Type: 
  Country: None (occurrence: None)
  Receive Date: 20040526
  Receipt Date: 20031211
  Transmission Date: 20050107
  Serious: No
  Sender: FDA-Public Use
  Company Number: US-GLAXOSMITHKLINE-A0443256A

PATIENT
  Age: 38 Year
  Sex: Male

DRUGS (1)
  1. LOTRONEX [Suspect]
     Indication: ABDOMINAL PAIN
     Route: 048
     Dates: start: 20000727

REACTIONS (1)
  - ADVERSE EVENT [None]
